FAERS Safety Report 5090370-6 (Version None)
Quarter: 2006Q3

REPORT INFORMATION
  Report Type: 
  Country: None (occurrence: None)
  Receive Date: 20060828
  Receipt Date: 20060629
  Transmission Date: 20061208
  Serious: Yes (Hospitalization)
  Sender: FDA-Public Use
  Company Number: CA-JNJFOC-20060601317

PATIENT
  Sex: Female

DRUGS (5)
  1. REMICADE [Suspect]
     Route: 042
  2. REMICADE [Suspect]
     Indication: CROHN'S DISEASE
     Route: 042
  3. PANTALOC [Concomitant]
     Indication: CROHN'S DISEASE
     Route: 048
  4. PREDNISONE TAB [Concomitant]
     Indication: CROHN'S DISEASE
     Route: 048
  5. DICLECTIN [Concomitant]
     Indication: NAUSEA
     Route: 048

REACTIONS (5)
  - DIARRHOEA [None]
  - DRUG EXPOSURE DURING PREGNANCY [None]
  - KIDNEY INFECTION [None]
  - NAUSEA [None]
  - VOMITING [None]
